FAERS Safety Report 4819758-2 (Version None)
Quarter: 2005Q4

REPORT INFORMATION
  Report Type: 
  Country: None (occurrence: None)
  Receive Date: 20051102
  Receipt Date: 20051021
  Transmission Date: 20060501
  Serious: Yes (Other)
  Sender: FDA-Public Use
  Company Number: 2005087350

PATIENT
  Sex: Female

DRUGS (3)
  1. DEPO-MEDROL [Suspect]
     Indication: LUMBAR SPINAL STENOSIS
     Dosage: 120 MG, EPIDURAL
     Route: 008
     Dates: start: 20031210
  2. BUPIVACAINE HCL [Suspect]
     Indication: LUMBAR SPINAL STENOSIS
     Dosage: 20 CC, EPIDURAL
     Route: 008
     Dates: start: 20031210
  3. LIDOCAINE HCL INJ [Concomitant]

REACTIONS (11)
  - BLOOD CORTISOL INCREASED [None]
  - BURNING SENSATION [None]
  - DIFFICULTY IN WALKING [None]
  - DRUG INEFFECTIVE [None]
  - FEELING ABNORMAL [None]
  - INJECTION SITE PAIN [None]
  - NERVE INJURY [None]
  - PAIN IN EXTREMITY [None]
  - SENSORY DISTURBANCE [None]
  - SWELLING [None]
  - VEIN DISCOLOURATION [None]
